FAERS Safety Report 12888032 (Version 1)
Quarter: 2016Q4

REPORT INFORMATION
  Report Type: Spontaneous
  Country: US (occurrence: US)
  Receive Date: 20161027
  Receipt Date: 20161027
  Transmission Date: 20170207
  Serious: No
  Sender: FDA-Public Use
  Company Number: US-DRREDDYS-USA/USA/16/0077936

PATIENT
  Sex: Female
  Weight: 68.04 kg

DRUGS (2)
  1. FAMOTIDINE OTC [Suspect]
     Active Substance: FAMOTIDINE
     Indication: DYSPEPSIA
     Route: 048
     Dates: start: 20160201, end: 20160306
  2. RANITIDINE. [Suspect]
     Active Substance: RANITIDINE
     Indication: DYSPEPSIA
     Route: 048
     Dates: start: 20160307

REACTIONS (3)
  - Nausea [Unknown]
  - Drug ineffective [Unknown]
  - Product quality issue [Unknown]
